FAERS Safety Report 6769193-5 (Version None)
Quarter: 2010Q2

REPORT INFORMATION
  Report Type: 
  Country: None (occurrence: None)
  Receive Date: 20100615
  Receipt Date: 20100601
  Transmission Date: 20101027
  Serious: Yes (Hospitalization, Disabling, Other)
  Sender: FDA-Public Use
  Company Number: PHHY2010JP36198

PATIENT
  Sex: Male

DRUGS (23)
  1. ALISKIREN ALI+TAB+HT [Suspect]
     Indication: HYPERTENSION
     Dosage: 150 MG
     Route: 048
     Dates: start: 20091127, end: 20100401
  2. ALISKIREN ALI+TAB+HT [Suspect]
     Dosage: 300 MG
     Route: 048
     Dates: start: 20100405, end: 20100418
  3. ALISKIREN ALI+TAB+HT [Suspect]
     Dosage: 150 MG
     Route: 048
     Dates: start: 20100419
  4. DIOVAN [Concomitant]
     Indication: HYPERTENSION
     Dosage: 80 MG
     Route: 048
     Dates: start: 20091208
  5. DIOVAN [Concomitant]
     Dosage: 160 MG
     Route: 048
  6. NU-LOTAN [Concomitant]
     Indication: HYPERTENSION
     Dosage: 50 MG,UNK
     Route: 048
     Dates: end: 20091119
  7. AMLODIPINE [Concomitant]
     Indication: HYPERTENSION
     Dosage: 10 MG,UNK
     Route: 048
     Dates: end: 20100119
  8. ALDACTONE [Concomitant]
     Indication: HYPERTENSION
     Dosage: 25 MG,UNK
     Route: 048
     Dates: start: 20100119, end: 20100308
  9. SELOKEN [Concomitant]
     Indication: HYPERTENSION
     Dosage: 80 MG
     Route: 048
  10. SELOKEN [Concomitant]
     Dosage: 120 MG
     Route: 048
  11. LASIX [Concomitant]
     Indication: HYPERTENSION
     Dosage: 40 MG
     Route: 048
     Dates: start: 20100220, end: 20100308
  12. LASIX [Concomitant]
     Dosage: 1DF
     Route: 042
     Dates: start: 20091228
  13. RENIVEZE [Concomitant]
     Indication: HYPERTENSION
     Dosage: 2.5 MG
     Route: 048
     Dates: start: 20100430
  14. ADALAT CC [Concomitant]
     Indication: HYPERTENSION
     Dosage: 20 MG
     Route: 048
     Dates: start: 20100423
  15. MELLITE [Concomitant]
     Dosage: 750 MG
     Route: 048
     Dates: end: 20091202
  16. CRESTOR [Concomitant]
     Dosage: 2.5 MG
     Route: 048
     Dates: end: 20100308
  17. EPOGIN [Concomitant]
     Dosage: 12000 IU
     Route: 058
     Dates: start: 20091202
  18. EPOGIN [Concomitant]
     Dosage: 9000 IU
     Route: 058
  19. CALCIUM CARBONATE [Concomitant]
     Dosage: 1500 MG
     Route: 048
     Dates: start: 20100312, end: 20100326
  20. GASMOTIN [Concomitant]
     Dosage: 15 MG
     Route: 048
     Dates: start: 20100329
  21. ALBUMIN (HUMAN) [Concomitant]
     Dosage: 2 DF
     Route: 042
     Dates: start: 20091228, end: 20100304
  22. ATELEC [Concomitant]
     Indication: HYPERTENSION
     Dosage: 20 MG
     Route: 048
     Dates: start: 20100119
  23. GLUFAST [Concomitant]
     Dosage: 20 MG
     Route: 048
     Dates: end: 20100202

REACTIONS (5)
  - BLOOD CREATININE INCREASED [None]
  - DIALYSIS [None]
  - HYPERTENSION [None]
  - HYPOKALAEMIA [None]
  - SHUNT MALFUNCTION [None]
